FAERS Safety Report 4822961-9 (Version None)
Quarter: 2005Q4

REPORT INFORMATION
  Report Type: 
  Country: None (occurrence: None)
  Receive Date: 20051104
  Receipt Date: 20051020
  Transmission Date: 20060501
  Serious: Yes (Death, Hospitalization)
  Sender: FDA-Public Use
  Company Number: 2005S1010649

PATIENT
  Age: 55 Year
  Sex: Male

DRUGS (2)
  1. AMITRIPTYLINE HCL [Suspect]
     Dosage: ORAL
     Route: 048
  2. NPH INSULIN [Suspect]

REACTIONS (2)
  - ELECTROCARDIOGRAM QT CORRECTED INTERVAL PROLONGED [None]
  - FALL [None]
